FAERS Safety Report 6656738-9 (Version None)
Quarter: 2010Q1

REPORT INFORMATION
  Report Type: 
  Country: None (occurrence: None)
  Receive Date: 20100324
  Receipt Date: 20100310
  Transmission Date: 20100710
  Serious: Yes (Other)
  Sender: FDA-Public Use
  Company Number: A-NJ2010-33353

PATIENT
  Age: 78 Year
  Sex: Female

DRUGS (3)
  1. TRACLEER [Suspect]
     Indication: PULMONARY ARTERIAL HYPERTENSION
     Dosage: 62.5 MG, BID, ORAL
     Route: 048
     Dates: start: 20090901, end: 20100225
  2. PLAVIX [Concomitant]
  3. ASPIRIN [Concomitant]

REACTIONS (11)
  - LIP SWELLING [None]
  - NAUSEA [None]
  - OEDEMA MOUTH [None]
  - OEDEMA PERIPHERAL [None]
  - RECTAL HAEMORRHAGE [None]
  - SKIN DISCOLOURATION [None]
  - SPEECH DISORDER [None]
  - TREMOR [None]
  - URTICARIA [None]
  - VAGINAL HAEMORRHAGE [None]
  - VOMITING [None]
